FAERS Safety Report 4348222-2 (Version None)
Quarter: 2004Q1

REPORT INFORMATION
  Report Type: 
  Country: None (occurrence: None)
  Receive Date: 20040325
  Receipt Date: 20040108
  Transmission Date: 20041129
  Serious: No
  Sender: FDA-Public Use
  Company Number: USA031050696

PATIENT
  Age: 72 Year
  Sex: Female
  Weight: 49 kg

DRUGS (2)
  1. FORTEO [Suspect]
     Dosage: 20 UG/DAY
     Dates: start: 20031016
  2. CELEBREX [Concomitant]

REACTIONS (10)
  - DECREASED APPETITE [None]
  - DIZZINESS [None]
  - FLATULENCE [None]
  - GASTROOESOPHAGEAL REFLUX DISEASE [None]
  - HEADACHE [None]
  - HYPOAESTHESIA [None]
  - INFUSION SITE BRUISING [None]
  - NAUSEA [None]
  - VERTIGO [None]
  - VOMITING [None]
